FAERS Safety Report 17348226 (Version 1)
Quarter: 2020Q1

REPORT INFORMATION
  Report Type: Report from Study
  Country: US (occurrence: US)
  Receive Date: 20200129
  Receipt Date: 20200129
  Transmission Date: 20200409
  Serious: No
  Sender: FDA-Public Use
  Company Number: US-EXELIXIS-CABO-19023637

PATIENT
  Age: 63 Year
  Sex: Male

DRUGS (3)
  1. SANDOSTATIN [Concomitant]
     Active Substance: OCTREOTIDE ACETATE
     Dosage: UNK
  2. AFINITOR [Concomitant]
     Active Substance: EVEROLIMUS
     Dosage: UNK
  3. CABOMETYX [Suspect]
     Active Substance: CABOZANTINIB S-MALATE
     Indication: NEUROENDOCRINE CARCINOMA
     Dosage: 40 MG, QD (6:30AM WITHOUT FOOD)
     Dates: start: 20190818

REACTIONS (10)
  - Oropharyngeal pain [Recovering/Resolving]
  - Dry skin [Unknown]
  - Product administration error [Unknown]
  - Headache [Not Recovered/Not Resolved]
  - Fatigue [Not Recovered/Not Resolved]
  - Exercise tolerance decreased [Unknown]
  - Dizziness [Not Recovered/Not Resolved]
  - Asthenia [Unknown]
  - Blood pressure increased [Recovering/Resolving]
  - Off label use [Unknown]

NARRATIVE: CASE EVENT DATE: 201908
